FAERS Safety Report 11684599 (Version 1)
Quarter: 2015Q4

REPORT INFORMATION
  Report Type: Report from Study
  Country: US (occurrence: US)
  Receive Date: 20151029
  Receipt Date: 20151029
  Transmission Date: 20160304
  Serious: Yes (Hospitalization)
  Sender: FDA-Public Use
  Company Number: US-ACTELION-A-NJ2015-126111

PATIENT
  Age: 60 Year
  Sex: Female

DRUGS (1)
  1. MECHLORETHAMINE [Suspect]
     Active Substance: MECHLORETHAMINE
     Indication: MYCOSIS FUNGOIDES
     Dosage: UNK
     Route: 061
     Dates: start: 20150721

REACTIONS (7)
  - Platelet count decreased [Unknown]
  - Pneumonia [Unknown]
  - Fall [Unknown]
  - Treatment noncompliance [Unknown]
  - Head injury [Unknown]
  - Memory impairment [Unknown]
  - Cerebral haemorrhage [Unknown]
